FAERS Safety Report 12450607 (Version 2)
Quarter: 2016Q2

REPORT INFORMATION
  Report Type: Spontaneous
  Country: GB (occurrence: GB)
  Receive Date: 20160609
  Receipt Date: 20160621
  Transmission Date: 20160815
  Serious: Yes (Other)
  Sender: FDA-Public Use
  Company Number: GB-WATSON-2016-11572

PATIENT
  Age: 3 Year
  Sex: Male

DRUGS (3)
  1. DEXAMETHASONE (UNKNOWN) [Suspect]
     Active Substance: DEXAMETHASONE
     Indication: EXTUBATION
     Dosage: 3.5 MG, QID
     Route: 042
     Dates: start: 20160509, end: 20160510
  2. DIPYRIDAMOLE (UNKNOWN) [Suspect]
     Active Substance: DIPYRIDAMOLE
     Indication: LIVER TRANSPLANT
     Dosage: 50 MG, TID
     Route: 048
     Dates: start: 20160421, end: 20160511
  3. ASPRO                              /00002701/ [Suspect]
     Active Substance: ASPIRIN
     Indication: LIVER TRANSPLANT
     Dosage: 40 MG, DAILY
     Route: 048
     Dates: start: 20160421, end: 20160511

REACTIONS (1)
  - Gastrointestinal haemorrhage [Recovering/Resolving]

NARRATIVE: CASE EVENT DATE: 20160510
